FAERS Safety Report 6635883-8 (Version None)
Quarter: 2010Q1

REPORT INFORMATION
  Report Type: 
  Country: None (occurrence: None)
  Receive Date: 20100316
  Receipt Date: 20100308
  Transmission Date: 20100710
  Serious: Yes (Other)
  Sender: FDA-Public Use
  Company Number: US-RB-004683-10

PATIENT
  Age: 57 Year
  Sex: Female
  Weight: 69.75 kg

DRUGS (7)
  1. MUCINEX DM [Suspect]
     Indication: COUGH
     Route: 048
     Dates: start: 20100220
  2. MUCINEX DM [Suspect]
     Dosage: TOOK 1 TABLET A DAY
     Route: 048
     Dates: start: 20100227
  3. TRIGLYCERIDES [Concomitant]
  4. SINGULAIR [Concomitant]
  5. TRICOR [Concomitant]
  6. DIOVAN [Concomitant]
  7. COREG [Concomitant]

REACTIONS (4)
  - ABDOMINAL PAIN UPPER [None]
  - ABNORMAL SENSATION IN EYE [None]
  - BLOOD PRESSURE INCREASED [None]
  - DIARRHOEA [None]
